FAERS Safety Report 9120431 (Version 1)
Quarter: 2013Q1

REPORT INFORMATION
  Report Type: Spontaneous
  Country: BR (occurrence: BR)
  Receive Date: 20130226
  Receipt Date: 20130226
  Transmission Date: 20140127
  Serious: Yes (Other)
  Sender: FDA-Public Use
  Company Number: PHHY2013BR017803

PATIENT
  Sex: Female

DRUGS (7)
  1. STALEVO [Suspect]
     Indication: PARKINSON^S DISEASE
     Dosage: 2 DF (200/50/12.5 MG), DAILY
     Route: 048
  2. STALEVO [Suspect]
     Dosage: 3 DF(200/50/12.5 MG), DAILY
     Route: 048
  3. STALEVO [Suspect]
     Dosage: 3 DF(200/100/25 MG), DAILY
     Route: 048
  4. STALEVO [Suspect]
     Dosage: 3 DF (200/50/12.5), DAILY
     Route: 048
  5. OMEPRAZOLE [Suspect]
     Indication: GASTROINTESTINAL DISORDER
  6. LEVODOPA [Suspect]
     Indication: PARKINSON^S DISEASE
     Dosage: UNK UKN, UNK
  7. RIVOTRIL [Suspect]
     Indication: SLEEP DISORDER

REACTIONS (7)
  - Unresponsive to stimuli [Not Recovered/Not Resolved]
  - Dysstasia [Not Recovered/Not Resolved]
  - Muscular weakness [Not Recovered/Not Resolved]
  - Asthenia [Not Recovered/Not Resolved]
  - Gait disturbance [Not Recovered/Not Resolved]
  - Dizziness [Not Recovered/Not Resolved]
  - Dyskinesia [Not Recovered/Not Resolved]
